FAERS Safety Report 7222406-8 (Version None)
Quarter: 2011Q1

REPORT INFORMATION
  Report Type: 
  Country: None (occurrence: None)
  Receive Date: 20110103
  Receipt Date: 20101227
  Transmission Date: 20110831
  Serious: Yes (Other)
  Sender: FDA-Public Use
  Company Number: 2010SP066535

PATIENT
  Age: 53 Year
  Sex: Female
  Weight: 53 kg

DRUGS (4)
  1. ORMIGREIN (ORMIGREIN) [Suspect]
     Indication: MIGRAINE
     Dosage: PO
     Route: 048
     Dates: start: 19900101
  2. ATENOLOL [Concomitant]
  3. NATRILIX SR [Concomitant]
  4. DIOVAN AMLO [Concomitant]

REACTIONS (1)
  - DRUG DEPENDENCE [None]
